FAERS Safety Report 6084121-6 (Version None)
Quarter: 2009Q1

REPORT INFORMATION
  Report Type: 
  Country: None (occurrence: None)
  Receive Date: 20090219
  Receipt Date: 20090217
  Transmission Date: 20090719
  Serious: Yes (Hospitalization)
  Sender: FDA-Public Use
  Company Number: US-MERCK-0901USA00825

PATIENT
  Age: 48 Year
  Sex: Male

DRUGS (6)
  1. CRIXIVAN [Suspect]
     Indication: HIV INFECTION
     Route: 048
     Dates: start: 20050201, end: 20081201
  2. CRIXIVAN [Suspect]
     Route: 048
     Dates: start: 20081210
  3. CRIXIVAN [Suspect]
     Route: 048
     Dates: start: 20081210
  4. CRIXIVAN [Suspect]
     Route: 048
     Dates: start: 20030101
  5. VIREAD [Concomitant]
     Route: 065
     Dates: start: 20081210
  6. SUSTIVA [Suspect]
     Route: 048
     Dates: start: 20081210

REACTIONS (3)
  - DEHYDRATION [None]
  - PNEUMONIA [None]
  - RENAL FAILURE ACUTE [None]
